FAERS Safety Report 9261635 (Version 1)
Quarter: 2013Q2

REPORT INFORMATION
  Report Type: Spontaneous
  Country: US (occurrence: US)
  Receive Date: 20130429
  Receipt Date: 20130429
  Transmission Date: 20140414
  Serious: Yes (Hospitalization)
  Sender: FDA-Public Use
  Company Number: US-ACTELION-A-US2013-82392

PATIENT
  Age: 15 Month
  Sex: Male

DRUGS (4)
  1. TRACLEER [Suspect]
     Indication: COR PULMONALE CHRONIC
     Dosage: 62.5 MG, BID
     Route: 048
     Dates: start: 20120709, end: 20130416
  2. SILDENAFIL [Concomitant]
  3. LASIX [Concomitant]
  4. SPIRONOLACTONE [Concomitant]
     Dosage: UNK
     Dates: start: 20120709, end: 20130416

REACTIONS (1)
  - Surgery [Unknown]
